FAERS Safety Report 16886252 (Version 1)
Quarter: 2019Q4

REPORT INFORMATION
  Report Type: Spontaneous
  Country: US (occurrence: US)
  Receive Date: 20191004
  Receipt Date: 20191004
  Transmission Date: 20200122
  Serious: Yes (Other)
  Sender: FDA-Public Use
  Company Number: None

PATIENT
  Age: 63 Year
  Weight: 117.9 kg

DRUGS (1)
  1. INLYTA [Suspect]
     Active Substance: AXITINIB
     Indication: BENIGN RENAL NEOPLASM
     Route: 048
     Dates: start: 20190808, end: 20191004

REACTIONS (1)
  - Hospice care [None]

NARRATIVE: CASE EVENT DATE: 20191004
